FAERS Safety Report 7951888-9 (Version None)
Quarter: 2011Q4

REPORT INFORMATION
  Report Type: 
  Country: None (occurrence: None)
  Receive Date: 20111201
  Receipt Date: 20111201
  Transmission Date: 20120403
  Serious: Yes (Other)
  Sender: FDA-Public Use
  Company Number: None

PATIENT
  Sex: Female
  Weight: 63.502 kg

DRUGS (1)
  1. LATISSE [Suspect]
     Indication: MADAROSIS
     Route: 061
     Dates: start: 20090702, end: 20090929

REACTIONS (1)
  - IRIS DISORDER [None]
